APPROVED DRUG PRODUCT: INDOMETHACIN
Active Ingredient: INDOMETHACIN
Strength: 50MG
Dosage Form/Route: SUPPOSITORY;RECTAL
Application: A215399 | Product #001 | TE Code: AB
Applicant: AMNEAL PHARMACEUTICALS LLC
Approved: Feb 24, 2025 | RLD: No | RS: No | Type: RX